FAERS Safety Report 13277828 (Version 1)
Quarter: 2017Q1

REPORT INFORMATION
  Report Type: Report from Study
  Country: US (occurrence: US)
  Receive Date: 20170228
  Receipt Date: 20170228
  Transmission Date: 20170428
  Serious: Yes (Other)
  Sender: FDA-Public Use
  Company Number: US-GILEAD-2017-0259457

PATIENT
  Age: 56 Year
  Sex: Male

DRUGS (1)
  1. LEDIPASVIR/SOFOSBUVIR [Suspect]
     Active Substance: LEDIPASVIR\SOFOSBUVIR
     Indication: HEPATITIS C
     Dosage: 1 DF, QD
     Route: 048
     Dates: start: 20160501, end: 20160704

REACTIONS (11)
  - Irritability [Unknown]
  - Coeliac disease [Unknown]
  - Nausea [Unknown]
  - Depression [Unknown]
  - Amnesia [Unknown]
  - Headache [Unknown]
  - Asthenia [Unknown]
  - Fatigue [Unknown]
  - Anger [Unknown]
  - Dyspepsia [Unknown]
  - Insomnia [Unknown]
